FAERS Safety Report 5859250-X (Version None)
Quarter: 2008Q3

REPORT INFORMATION
  Report Type: 
  Country: None (occurrence: None)
  Receive Date: 20080827
  Receipt Date: 20080423
  Transmission Date: 20090109
  Serious: No
  Sender: FDA-Public Use
  Company Number: US-BAYER-200821683NA

PATIENT
  Age: 58 Year
  Sex: Female

DRUGS (1)
  1. CLIMARA PRO [Suspect]
     Indication: UNEVALUABLE EVENT
     Route: 062
     Dates: start: 20070201

REACTIONS (2)
  - PRURITUS [None]
  - RASH MACULAR [None]
